FAERS Safety Report 8224296-3 (Version None)
Quarter: 2012Q1

REPORT INFORMATION
  Report Type: 
  Country: None (occurrence: None)
  Receive Date: 20120321
  Receipt Date: 20120109
  Transmission Date: 20120608
  Serious: Yes (Hospitalization)
  Sender: FDA-Public Use
  Company Number: US-ASTELLAS-2011US008553

PATIENT
  Sex: Female
  Weight: 77 kg

DRUGS (3)
  1. ANTIHYPERTENSIVES [Concomitant]
     Indication: HYPERTENSION
     Dosage: UNK
     Route: 065
  2. LEXISCAN [Suspect]
     Indication: SCAN MYOCARDIAL PERFUSION
     Dosage: 400 UG, TOTAL DOSE
     Route: 042
     Dates: start: 20111215, end: 20111215
  3. LEXISCAN [Suspect]
     Dosage: 400 UG, TOTAL DOSE
     Route: 042

REACTIONS (6)
  - UNRESPONSIVE TO STIMULI [None]
  - SINUS BRADYCARDIA [None]
  - DIZZINESS [None]
  - HYPOTENSION [None]
  - FEELING ABNORMAL [None]
  - DYSPNOEA [None]
